FAERS Safety Report 25469518 (Version 2)
Quarter: 2025Q2

REPORT INFORMATION
  Report Type: Report from Study
  Country: ES (occurrence: ES)
  Receive Date: 20250623
  Receipt Date: 20250626
  Transmission Date: 20250717
  Serious: Yes (Death)
  Sender: DAIICHI
  Company Number: ES-DSJP-DS-2025-148458-ES

PATIENT
  Age: 80 Year
  Sex: Male
  Weight: 63 kg

DRUGS (5)
  1. DATOPOTAMAB DERUXTECAN [Suspect]
     Active Substance: DATOPOTAMAB DERUXTECAN
     Indication: Non-small cell lung cancer
     Dosage: 375 MG, ONCE EVERY 3 WK
     Route: 042
     Dates: start: 20250123, end: 20250325
  2. LEVOTHYROXINE SODIUM [Concomitant]
     Active Substance: LEVOTHYROXINE SODIUM
     Indication: Hypothyroidism
     Dosage: 75 UG, QD
     Route: 065
  3. ISONIAZID\PYRIDOXINE [Concomitant]
     Active Substance: ISONIAZID\PYRIDOXINE
     Indication: Tuberculosis
     Dosage: 300 MG/50 MG DAILY
     Route: 065
  4. MIRTAZAPINE [Concomitant]
     Active Substance: MIRTAZAPINE
     Indication: Depression
     Dosage: 15 MG, QD
     Route: 065
  5. PANTOPRAZOLE [Concomitant]
     Active Substance: PANTOPRAZOLE
     Indication: Gastritis
     Dosage: 40 MG, QD
     Route: 065

REACTIONS (1)
  - Acute myocardial infarction [Fatal]

NARRATIVE: CASE EVENT DATE: 20250412
